FAERS Safety Report 22069971 (Version 1)
Quarter: 2023Q1

REPORT INFORMATION
  Report Type: Spontaneous
  Country: US (occurrence: US)
  Receive Date: 20230307
  Receipt Date: 20230307
  Transmission Date: 20230418
  Serious: No
  Sender: FDA-Public Use
  Company Number: US-AMNEAL PHARMACEUTICALS-2022-AMRX-01599

PATIENT
  Sex: Male
  Weight: 117.9 kg

DRUGS (1)
  1. RYTARY [Suspect]
     Active Substance: CARBIDOPA\LEVODOPA
     Indication: Parkinson^s disease
     Dosage: 23.75/95 MG, TID, 3 CAPSULES A DAY
     Route: 048

REACTIONS (2)
  - Bedridden [Unknown]
  - Adverse drug reaction [Unknown]
